FAERS Safety Report 13757818 (Version 4)
Quarter: 2022Q4

REPORT INFORMATION
  Report Type: Spontaneous
  Country: FR (occurrence: FR)
  Receive Date: 20170717
  Receipt Date: 20221201
  Transmission Date: 20230113
  Serious: Yes (Death, Life-Threatening, Other)
  Sender: FDA-Public Use
  Company Number: FR-ACCORD-053593

PATIENT
  Age: 68 Year
  Sex: Male

DRUGS (4)
  1. GEMCITABINE [Suspect]
     Active Substance: GEMCITABINE
     Indication: Cutaneous T-cell lymphoma
     Dosage: 1000 MG/M2, CYCLIC (AT A RATE OF ONE INFUSION PER WEEK IN THREE OF EVERY FOUR WEEKS)
  2. MYCOPHENOLATE MOFETIL [Suspect]
     Active Substance: MYCOPHENOLATE MOFETIL
     Indication: Heart transplant
     Route: 065
  3. TACROLIMUS [Suspect]
     Active Substance: TACROLIMUS
     Indication: Heart transplant
     Dosage: 1.5 MG, TWICE DAILY (2 PER DAY)
     Route: 065
     Dates: start: 1995
  4. PREDNISOLONE [Suspect]
     Active Substance: PREDNISOLONE
     Indication: Heart transplant
     Route: 065

REACTIONS (4)
  - Cutaneous T-cell lymphoma [Recovering/Resolving]
  - Staphylococcal bacteraemia [Fatal]
  - Septic shock [Fatal]
  - Chronic kidney disease [Not Recovered/Not Resolved]

NARRATIVE: CASE EVENT DATE: 20140801
